FAERS Safety Report 8772634 (Version 2)
Quarter: 2012Q4

REPORT INFORMATION
  Report Type: 
  Country: US (occurrence: US)
  Receive Date: 20120905
  Receipt Date: 20120921
  Transmission Date: 20130627
  Serious: No
  Sender: FDA-Public Use
  Company Number: US-PFIZER INC-2012214462

PATIENT
  Age: 69 Year

DRUGS (4)
  1. DOXYCYCLINE CALCIUM [Suspect]
     Dosage: UNK
     Route: 048
  2. HYDROCHLOROTHIAZIDE [Suspect]
     Dosage: UNK
  3. MACROBID [Suspect]
     Dosage: UNK
  4. ALEVE [Suspect]
     Dosage: UNK

REACTIONS (1)
  - Drug hypersensitivity [Unknown]
